FAERS Safety Report 19474550 (Version 1)
Quarter: 2021Q2

REPORT INFORMATION
  Report Type: Spontaneous
  Country: US (occurrence: US)
  Receive Date: 20210629
  Receipt Date: 20210629
  Transmission Date: 20210717
  Serious: No
  Sender: FDA-Public Use
  Company Number: US-CELGENEUS-USA-20210606976

PATIENT
  Age: 49 Year
  Sex: Female

DRUGS (1)
  1. ZEPOSIA [Suspect]
     Active Substance: OZANIMOD HYDROCHLORIDE
     Indication: MULTIPLE SCLEROSIS
     Dosage: .92 MILLIGRAM
     Route: 048
     Dates: start: 20210606

REACTIONS (4)
  - Nausea [Not Recovered/Not Resolved]
  - Oral discomfort [Not Recovered/Not Resolved]
  - Rash [Not Recovered/Not Resolved]
  - Abdominal discomfort [Not Recovered/Not Resolved]

NARRATIVE: CASE EVENT DATE: 20210619
